FAERS Safety Report 12520081 (Version 1)
Quarter: 2016Q3

REPORT INFORMATION
  Report Type: Report from Study
  Country: IE (occurrence: IE)
  Receive Date: 20160701
  Receipt Date: 20160701
  Transmission Date: 20161109
  Serious: Yes (Hospitalization, Other)
  Sender: FDA-Public Use
  Company Number: IE-AMGEN-IRLSL2016083765

PATIENT
  Age: 75 Year
  Sex: Male

DRUGS (13)
  1. FUROSEMIDE. [Concomitant]
     Active Substance: FUROSEMIDE
     Dosage: 40 MG, BID
     Route: 050
  2. MINOXIDIL. [Concomitant]
     Active Substance: MINOXIDIL
     Dosage: 5 MG, QD
     Route: 050
  3. PANTOPRAZOLE [Concomitant]
     Active Substance: PANTOPRAZOLE SODIUM
     Dosage: 40 MG, QD
     Route: 050
  4. ONE ALPHA [Concomitant]
     Active Substance: ALFACALCIDOL
     Dosage: 0.25 MUG, ON ALTERNATE DAYS
     Route: 050
  5. BISOPROLOL [Concomitant]
     Active Substance: BISOPROLOL
     Dosage: 10 MG, QD
     Route: 050
  6. ARANESP [Suspect]
     Active Substance: DARBEPOETIN ALFA
     Indication: DIABETIC NEPHROPATHY
     Dosage: 60 MUG, QMO
     Route: 050
     Dates: start: 20121031
  7. SODIUM BICARBONATE. [Concomitant]
     Active Substance: SODIUM BICARBONATE
     Dosage: 1200 MG, QD
     Route: 050
  8. PLAVIX [Concomitant]
     Active Substance: CLOPIDOGREL BISULFATE
     Dosage: 75 MG, QD
     Route: 050
  9. GALFER [Concomitant]
     Active Substance: IRON
     Dosage: 305 MG, QD
     Route: 050
  10. DOXAZOSIN [Concomitant]
     Active Substance: DOXAZOSIN\DOXAZOSIN MESYLATE
     Dosage: 4 MG, QD
     Route: 050
  11. LERCANIDIPINE [Concomitant]
     Active Substance: LERCANIDIPINE
     Dosage: 20 MG, QD
     Route: 050
  12. CALCIUM ACETATE. [Concomitant]
     Active Substance: CALCIUM ACETATE
     Dosage: 1000 UNK, QD
     Route: 050
  13. IMDUR [Concomitant]
     Active Substance: ISOSORBIDE MONONITRATE
     Dosage: 60 MG, QD
     Route: 050

REACTIONS (2)
  - Lung infection [Recovered/Resolved]
  - Haemoglobin abnormal [Recovered/Resolved]

NARRATIVE: CASE EVENT DATE: 201603
